FAERS Safety Report 4364416-4 (Version None)
Quarter: 2004Q2

REPORT INFORMATION
  Report Type: 
  Country: None (occurrence: None)
  Receive Date: 20040525
  Receipt Date: 20040402
  Transmission Date: 20050107
  Serious: Yes (Hospitalization)
  Sender: FDA-Public Use
  Company Number: NO-ROCHE-363618

PATIENT
  Age: 62 Year
  Sex: Male
  Weight: 97 kg

DRUGS (10)
  1. INTERFERON ALFA [Suspect]
     Indication: LYMPHOMA
     Route: 058
     Dates: start: 20040312, end: 20040401
  2. INTERFERON ALFA [Suspect]
     Route: 058
     Dates: start: 20040304, end: 20040311
  3. RITUXIMAB [Suspect]
     Indication: LYMPHOMA
     Dosage: ACTUAL DOSE RECEIVED: 825 MG.
     Route: 042
     Dates: start: 20040318, end: 20040401
  4. ZESTRIL [Concomitant]
     Dates: start: 19960615, end: 20040401
  5. FELODIPINE [Concomitant]
     Dates: start: 19960615, end: 20040401
  6. CARBAMAZEPINE [Concomitant]
     Dates: start: 19840615, end: 20040401
  7. LOPERAMIDE HCL [Concomitant]
     Dates: start: 20040311
  8. ACETAMINOPHEN [Concomitant]
     Dates: start: 20040401
  9. IBUPROFEN [Concomitant]
     Dates: start: 19970615, end: 20040401
  10. SULFASALAZIN [Concomitant]
     Dates: start: 19970615, end: 20040401

REACTIONS (6)
  - CHILLS [None]
  - GENERAL PHYSICAL HEALTH DETERIORATION [None]
  - PYREXIA [None]
  - RENAL FAILURE [None]
  - TUMOUR LYSIS SYNDROME [None]
  - WEIGHT DECREASED [None]
